FAERS Safety Report 7974820 (Version 8)
Quarter: 2014Q1

REPORT INFORMATION
  Report Type: Spontaneous
  Country: AT (occurrence: AT)
  Receive Date: 20110606
  Receipt Date: 20140306
  Transmission Date: 20141002
  Serious: Yes (Hospitalization)
  Sender: FDA-Public Use
  Company Number: AT-JNJFOC-20110510693

PATIENT
  Age: 27 Year
  Sex: Female

DRUGS (11)
  1. TOPAMAX [Suspect]
     Indication: MIGRAINE WITH AURA
     Dosage: 50-75 MG
     Route: 048
     Dates: start: 20110302, end: 20110317
  2. NEUROTOP RETARD [Suspect]
     Indication: PRODUCT USED FOR UNKNOWN INDICATION
     Route: 065
     Dates: start: 20110223, end: 20110318
  3. EFECTIN [Suspect]
     Indication: PRODUCT USED FOR UNKNOWN INDICATION
     Route: 065
     Dates: start: 20110225, end: 20110317
  4. ZELDOX [Suspect]
     Indication: PRODUCT USED FOR UNKNOWN INDICATION
     Dosage: 20-40 MG
     Route: 065
     Dates: start: 20110327, end: 20110502
  5. ZELDOX [Suspect]
     Indication: PRODUCT USED FOR UNKNOWN INDICATION
     Dosage: 20-40 MG
     Route: 065
     Dates: start: 20110224, end: 20110316
  6. ABILIFY [Suspect]
     Indication: PRODUCT USED FOR UNKNOWN INDICATION
     Route: 065
     Dates: start: 20110310, end: 20110317
  7. ABILIFY [Suspect]
     Indication: PRODUCT USED FOR UNKNOWN INDICATION
     Dosage: 5-20 MG
     Route: 065
     Dates: start: 20110412
  8. PANTOLOC [Suspect]
     Indication: PRODUCT USED FOR UNKNOWN INDICATION
     Route: 065
     Dates: start: 20110125, end: 20110317
  9. PRAXITEN [Concomitant]
     Indication: PRODUCT USED FOR UNKNOWN INDICATION
     Dosage: 100-150 MG/DAY
     Route: 065
     Dates: start: 20110317, end: 20110325
  10. PRAXITEN [Concomitant]
     Indication: PRODUCT USED FOR UNKNOWN INDICATION
     Dosage: 15-50 MG/DAY
     Route: 065
     Dates: start: 20110125, end: 20110316
  11. STABLON [Concomitant]
     Indication: PRODUCT USED FOR UNKNOWN INDICATION
     Route: 065
     Dates: start: 20110321, end: 20110325

REACTIONS (6)
  - Suicide attempt [Recovered/Resolved]
  - Restlessness [Recovered/Resolved]
  - Leukopenia [Unknown]
  - Insomnia [Recovered/Resolved]
  - Merycism [Recovered/Resolved]
  - Drug withdrawal syndrome [Unknown]
